FAERS Safety Report 6888299-3 (Version None)
Quarter: 2010Q3

REPORT INFORMATION
  Report Type: 
  Country: None (occurrence: None)
  Receive Date: 20100730
  Receipt Date: 20100723
  Transmission Date: 20110219
  Serious: Yes (Congenital Anomaly, Other)
  Sender: FDA-Public Use
  Company Number: AR-BRISTOL-MYERS SQUIBB COMPANY-15212020

PATIENT
  Sex: Male
  Weight: 3 kg

DRUGS (6)
  1. VIDEX [Suspect]
     Route: 064
     Dates: start: 20040122, end: 20040123
  2. COMBIVIR [Suspect]
     Dosage: COURSE 1 12NOV2003-21JAN2004. COURSE 2 24JAN04-14FEB-2004.
     Route: 064
     Dates: start: 20031112, end: 20040214
  3. EPIVIR [Suspect]
     Route: 064
     Dates: start: 20040122, end: 20040123
  4. KALETRA [Suspect]
     Route: 064
     Dates: start: 20040122, end: 20040123
  5. VIRAMUNE [Suspect]
     Dosage: 12NOV03-25NOV03. 26NOV03-21JAN04.COURSE 2 24JAN04-12FEB04.COURSE 3
     Route: 064
     Dates: start: 20031112, end: 20040212
  6. METRONIDAZOLE [Suspect]
     Route: 064

REACTIONS (2)
  - APLASIA CUTIS CONGENITA [None]
  - UMBILICAL HERNIA [None]
